FAERS Safety Report 25122591 (Version 2)
Quarter: 2025Q2

REPORT INFORMATION
  Report Type: Spontaneous
  Country: CN (occurrence: CN)
  Receive Date: 20250326
  Receipt Date: 20250403
  Transmission Date: 20250717
  Serious: Yes (Hospitalization, Other)
  Sender: AMGEN
  Company Number: CN-AMGEN-CHNSP2025057108

PATIENT
  Age: 56 Year
  Sex: Male
  Weight: 78 kg

DRUGS (3)
  1. KYPROLIS [Suspect]
     Active Substance: CARFILZOMIB
     Indication: Product used for unknown indication
     Route: 040
     Dates: start: 20250310, end: 20250311
  2. KYPROLIS [Suspect]
     Active Substance: CARFILZOMIB
     Route: 040
     Dates: start: 20250317, end: 20250318
  3. DEXTROSE [Concomitant]
     Active Substance: DEXTROSE MONOHYDRATE
     Indication: Product used for unknown indication
     Route: 040
     Dates: start: 20250310, end: 20250318

REACTIONS (1)
  - Myelosuppression [Unknown]

NARRATIVE: CASE EVENT DATE: 20250311
